FAERS Safety Report 4799729-5 (Version None)
Quarter: 2005Q4

REPORT INFORMATION
  Report Type: 
  Country: None (occurrence: None)
  Receive Date: 20051011
  Receipt Date: 20051011
  Transmission Date: 20060501
  Serious: Yes (Hospitalization)
  Sender: FDA-Public Use
  Company Number: None

PATIENT
  Age: 73 Year
  Sex: Male
  Weight: 76.6579 kg

DRUGS (3)
  1. WARFARIN 6MG [Suspect]
     Indication: DEEP VEIN THROMBOSIS
     Dosage: DAILY
  2. WARFARIN 6MG [Suspect]
     Indication: HIP FRACTURE
     Dosage: DAILY
  3. WARFARIN 6MG [Suspect]
     Indication: INTERNAL FIXATION OF FRACTURE
     Dosage: DAILY

REACTIONS (2)
  - INTERNATIONAL NORMALISED RATIO INCREASED [None]
  - RECTAL HAEMORRHAGE [None]
